FAERS Safety Report 8189041-9 (Version None)
Quarter: 2012Q1

REPORT INFORMATION
  Report Type: 
  Country: None (occurrence: None)
  Receive Date: 20120307
  Receipt Date: 20120229
  Transmission Date: 20120608
  Serious: No
  Sender: FDA-Public Use
  Company Number: US-BIOGENIDEC-2012BI007597

PATIENT
  Age: 57 Year
  Sex: Female

DRUGS (1)
  1. TYSABRI [Suspect]
     Indication: MULTIPLE SCLEROSIS
     Route: 042
     Dates: start: 20110228

REACTIONS (5)
  - ABASIA [None]
  - URINARY TRACT INFECTION [None]
  - ARTHRALGIA [None]
  - TENDONITIS [None]
  - SINUSITIS [None]
